FAERS Safety Report 7984056-5 (Version None)
Quarter: 2011Q4

REPORT INFORMATION
  Report Type: 
  Country: None (occurrence: None)
  Receive Date: 20111216
  Receipt Date: 20111213
  Transmission Date: 20120403
  Serious: Yes (Hospitalization)
  Sender: FDA-Public Use
  Company Number: IT-PFIZER INC-2011286273

PATIENT
  Age: 81 Year
  Sex: Male

DRUGS (7)
  1. CORDARONE [Suspect]
     Indication: ARRHYTHMIA
     Dosage: 200 MG 5 TIMES WEEKLY
     Route: 048
     Dates: start: 20080101, end: 20111104
  2. HALOPERIDOL [Concomitant]
     Indication: DEMENTIA
     Dosage: 5 MG
     Route: 048
  3. LASIX [Suspect]
     Indication: HYPERTENSION
     Dosage: 25 MG, 1X/DAY
     Route: 048
     Dates: start: 20080101, end: 20111104
  4. ZOLOFT [Suspect]
     Indication: DEPRESSION
     Dosage: 50 MG, 1X/DAY
     Route: 048
     Dates: start: 20100101, end: 20111104
  5. ACETYLSALICYLIC ACID SRT [Suspect]
     Indication: CARDIOVASCULAR EVENT PROPHYLAXIS
     Dosage: 100 MG, 1X/DAY
     Route: 048
     Dates: start: 20100101, end: 20111104
  6. CEFTAZIDIME [Suspect]
     Indication: BRONCHITIS
     Dosage: 1 G 6 TIMES DAILY
     Route: 030
     Dates: start: 20111028, end: 20111104
  7. OMEPRAZOLE [Concomitant]
     Indication: PROPHYLAXIS AGAINST GASTROINTESTINAL ULCER
     Dosage: 20 MG
     Route: 048

REACTIONS (2)
  - MELAENA [None]
  - ANAEMIA [None]
